FAERS Safety Report 24398138 (Version 1)
Quarter: 2024Q4

REPORT INFORMATION
  Report Type: Spontaneous
  Country: US (occurrence: US)
  Receive Date: 20241004
  Receipt Date: 20241004
  Transmission Date: 20250114
  Serious: No
  Sender: BAYER
  Company Number: US-BAYER-2024A137036

PATIENT
  Age: 72 Year
  Sex: Male

DRUGS (7)
  1. MIRALAX [Suspect]
     Active Substance: POLYETHYLENE GLYCOL 3350
     Indication: Prophylaxis
     Dosage: 1 PACK - SUNDAY + MONDAY 2PACK - TUESDAY ( TODAY )
     Route: 048
     Dates: start: 20240922, end: 20240924
  2. MIRALAX [Suspect]
     Active Substance: POLYETHYLENE GLYCOL 3350
     Indication: Prophylaxis
     Dosage: 1 PACK - SUNDAY + MONDAY 2PACK - TUESDAY ( TODAY )
     Route: 048
     Dates: start: 20240922, end: 20240924
  3. ELIQUIS [Concomitant]
     Active Substance: APIXABAN
     Indication: Prophylaxis
     Dosage: 5MG 2X A DAY
     Route: 048
     Dates: start: 202401
  4. AMLODIPINE [Concomitant]
     Active Substance: AMLODIPINE BESYLATE
     Indication: Prophylaxis
     Dosage: 5MG 1X A DAY
     Route: 048
     Dates: start: 202401
  5. LISINOPRIL [Concomitant]
     Active Substance: LISINOPRIL
     Indication: Prophylaxis
     Dosage: 20MG 1X A DAY
     Route: 048
     Dates: start: 202401
  6. METOPROLOL [Concomitant]
     Active Substance: METOPROLOL
     Indication: Prophylaxis
     Dosage: 50MG 1X A DAY
     Route: 048
     Dates: start: 202401
  7. TAMSULOSIN [Concomitant]
     Active Substance: TAMSULOSIN
     Indication: Prophylaxis
     Dosage: 04MG 1X A DAY
     Route: 048
     Dates: start: 202401

REACTIONS (2)
  - Incorrect dose administered [Not Recovered/Not Resolved]
  - Drug ineffective [Not Recovered/Not Resolved]

NARRATIVE: CASE EVENT DATE: 20240922
